FAERS Safety Report 10241404 (Version 1)
Quarter: 2014Q1

REPORT INFORMATION
  Report Type: Spontaneous
  Country: US (occurrence: None)
  Receive Date: 20140306
  Receipt Date: 20140306
  Transmission Date: 20141002
  Serious: Yes (Other)
  Sender: FDA-Public Use
  Company Number: 163-21880-13122717

PATIENT
  Age: 69 Year
  Sex: Female
  Weight: 65 kg

DRUGS (27)
  1. REVLIMID (LENALIDOMIDE) (5 MILLIGRAM, CAPSULES) [Suspect]
     Indication: PLASMA CELL MYELOMA
     Route: 048
     Dates: start: 20100416
  2. CHLOROPHYLL (TABLETS) [Concomitant]
  3. RED WINE-POMEGRANATE CAPSULE (ALL OTHER THERAPEUTIC PRODUCTS) [Concomitant]
  4. RA CHROMIUM PICOLINATE (TABLETS) [Concomitant]
  5. BIOTIN (UNKNOWN) [Concomitant]
  6. UBIQUINOL (POWDER) [Concomitant]
  7. OLIVE LEAF EXTRACT (CAPSULES) [Concomitant]
  8. ASPIRIN EC (ACETYLSALICYLIC ACID) (TABLETS) [Concomitant]
  9. FLAX SEED OIL (LINUM USITATISSIMUM SEED OIL) [Concomitant]
  10. ACIDOPHILUS PROBIOTIC (LACTOBACILLUS ACIDOPHILUS) (CAPSULES) [Concomitant]
  11. VITAMIN D (ERGOCALCIFEROL) (TABLETS) [Concomitant]
  12. GRAPESEED OIL (VITIS VINIFERA EXTRACT) (UNKNOWN) [Concomitant]
  13. GUMMIES GIRLS MULTIVITAMINS (UNKNOWN) [Concomitant]
  14. VELCADE (BORTEZOMIB) [Concomitant]
  15. ZOMETA (ZOLEDRONIC ACID) (INJECTION) [Concomitant]
  16. VENOFER (SACCHARATED IRON OXIDE) [Concomitant]
  17. CHARCOAL (ACTIVATED) (UNKNOWN) [Concomitant]
  18. COQ10 (UBIDECARENONE) (CAPSULES) [Concomitant]
  19. VITAMIN C (ASCORBIC ACID) (UNKNOWN) [Concomitant]
  20. CYMBALTA [Concomitant]
  21. DEXAMETHASONE (CAPSULES) [Concomitant]
  22. LISINOPRIL (TABLETS) [Concomitant]
  23. VERAPAMIL ER (TABLETS) [Concomitant]
  24. TOPROL XL (METOPROLOL SUCCINATE) (TABLETS) [Concomitant]
  25. ALPRAZOLAM (UNKNOWN) [Concomitant]
  26. TYLENOL (PARACETAMOL) (TABLETS) [Concomitant]
  27. CALCIUM PLUS VIT D3 (LEKOVIT CA) (UNKNOWN) [Concomitant]

REACTIONS (4)
  - Melaena [None]
  - Haemoglobin decreased [None]
  - Haematocrit decreased [None]
  - Glomerular filtration rate decreased [None]
